FAERS Safety Report 7577768-9 (Version None)
Quarter: 2011Q2

REPORT INFORMATION
  Report Type: 
  Country: None (occurrence: None)
  Receive Date: 20110628
  Receipt Date: 20110617
  Transmission Date: 20111010
  Serious: Yes (Other)
  Sender: FDA-Public Use
  Company Number: US-ROCHE-757929

PATIENT
  Sex: Female
  Weight: 61.2 kg

DRUGS (26)
  1. NITROGLYCERIN [Concomitant]
     Route: 060
  2. CELEBREX [Concomitant]
  3. HYDROCODONE [Concomitant]
     Indication: PAIN
     Dosage: DOSE REPORTED:500
  4. FLEXERIL [Concomitant]
  5. NEURONTIN [Concomitant]
  6. DEPO-MEDROL [Concomitant]
     Indication: PREMEDICATION
  7. ACTEMRA [Suspect]
     Route: 042
     Dates: start: 20110221, end: 20110221
  8. GABAPENTIN [Concomitant]
  9. METOPROLOL TARTRATE [Concomitant]
     Indication: BLOOD PRESSURE
  10. SIMVASTATIN [Concomitant]
  11. ACTEMRA [Suspect]
     Dosage: FORM: INFUSION
     Route: 042
     Dates: start: 20101221, end: 20101221
  12. NIFEDIPINE [Concomitant]
  13. CYMBALTA [Concomitant]
     Indication: FIBROMYALGIA
     Dosage: INDICATION: DEPRESSION
  14. EVOXAC [Concomitant]
     Indication: DRY MOUTH
  15. ACTEMRA [Suspect]
     Route: 042
     Dates: start: 20110127, end: 20110127
  16. NIACIN [Concomitant]
  17. NEURONTIN [Concomitant]
     Indication: NECK PAIN
  18. PRILOSEC [Concomitant]
  19. AMBIEN [Concomitant]
     Indication: SOMNOLENCE
     Dosage: TAKEN AT BEDTIME
  20. ACTEMRA [Suspect]
     Route: 042
     Dates: start: 20110321, end: 20110321
  21. ACTEMRA [Suspect]
     Dosage: DOSE: 100-150 MG
     Route: 042
     Dates: start: 20110421, end: 20110421
  22. ALBUTEROL SULFATE AUTOHALER [Concomitant]
     Dosage: ROUTE:PUFFER
     Route: 050
  23. PROTONIX [Concomitant]
  24. AMBIEN [Concomitant]
     Dosage: TAKEN AT BEDTIME
  25. METOPROLOL TARTRATE [Concomitant]
  26. SYNTHROID [Concomitant]
     Indication: HYPOTHYROIDISM

REACTIONS (10)
  - DYSKINESIA [None]
  - PNEUMONIA [None]
  - ANAEMIA MACROCYTIC [None]
  - C-REACTIVE PROTEIN INCREASED [None]
  - BRONCHITIS [None]
  - DIZZINESS [None]
  - ABDOMINAL PAIN UPPER [None]
  - HYPOAESTHESIA [None]
  - NEURALGIA [None]
  - NEUROPATHY PERIPHERAL [None]
